FAERS Safety Report 6770657 (Version 11)
Quarter: 2012Q4

REPORT INFORMATION
  Report Type: 
  Country: CA (occurrence: CA)
  Receive Date: 20080925
  Receipt Date: 20121026
  Transmission Date: 20130627
  Serious: Yes (Hospitalization, Other)
  Sender: FDA-Public Use
  Company Number: PHHY2008CA21487

PATIENT
  Sex: Female

DRUGS (5)
  1. SANDOSTATIN LAR [Suspect]
     Indication: NEUROENDOCRINE TUMOUR
     Dosage: 30 mg, QMO
     Route: 030
     Dates: start: 20070924
  2. SANDOSTATIN LAR [Suspect]
     Dosage: 40 mg, QMO
     Route: 030
  3. SANDOSTATIN LAR [Suspect]
     Dosage: 40 mg, every three weeks
     Route: 030
  4. SANDOSTATIN LAR [Suspect]
     Dosage: 40 mg, Every 4 weeks
     Route: 030
  5. SANDOSTATIN LAR [Suspect]
     Dosage: 40 mg, QMO
     Route: 030
     Dates: end: 20120109

REACTIONS (9)
  - Bile duct obstruction [Unknown]
  - Pyrexia [Unknown]
  - Abdominal pain [Unknown]
  - Infection [Unknown]
  - Enterococcus test positive [Unknown]
  - Liver disorder [Unknown]
  - Diabetes mellitus [Unknown]
  - Blood chromogranin A increased [Unknown]
  - Nausea [Unknown]
